FAERS Safety Report 6568020-9 (Version None)
Quarter: 2010Q1

REPORT INFORMATION
  Report Type: 
  Country: None (occurrence: None)
  Receive Date: 20100203
  Receipt Date: 20100121
  Transmission Date: 20100710
  Serious: Yes (Hospitalization)
  Sender: FDA-Public Use
  Company Number: PHHY2009ES56597

PATIENT
  Sex: Female

DRUGS (6)
  1. GLEEVEC [Suspect]
     Indication: CHRONIC MYELOID LEUKAEMIA
     Dosage: UNK
  2. ZYLORIC [Concomitant]
  3. ASPIRIN [Concomitant]
     Dosage: 500 MG, QD
  4. OMEPRAZOL [Concomitant]
     Dosage: 20 MG, QD
  5. AINES [Concomitant]
  6. BETA BLOCKING AGENTS [Concomitant]

REACTIONS (1)
  - MYOCARDITIS [None]
